FAERS Safety Report 8485635-1 (Version None)
Quarter: 2012Q3

REPORT INFORMATION
  Report Type: 
  Country: None (occurrence: None)
  Receive Date: 20120703
  Receipt Date: 20120627
  Transmission Date: 20120928
  Serious: Yes (Other)
  Sender: FDA-Public Use
  Company Number: US-TEVA-344194USA

PATIENT
  Sex: Female

DRUGS (1)
  1. ZIAC [Suspect]
     Indication: BLOOD PRESSURE
     Dosage: 2.5MG/6.25 STRENGTH
     Route: 048

REACTIONS (3)
  - BLOOD PRESSURE INADEQUATELY CONTROLLED [None]
  - CEREBROVASCULAR ACCIDENT [None]
  - DRUG INEFFECTIVE [None]
